FAERS Safety Report 19602579 (Version 1)
Quarter: 2021Q3

REPORT INFORMATION
  Report Type: Spontaneous
  Country: TR (occurrence: TR)
  Receive Date: 20210724
  Receipt Date: 20210724
  Transmission Date: 20211014
  Serious: Yes (Death, Hospitalization)
  Sender: FDA-Public Use
  Company Number: TR-LUPIN PHARMACEUTICALS INC.-2021-12892

PATIENT
  Age: 16 Year
  Sex: Male

DRUGS (3)
  1. VORICONAZOLE. [Suspect]
     Active Substance: VORICONAZOLE
     Indication: ANTIFUNGAL TREATMENT
     Dosage: UNK
     Route: 065
     Dates: start: 2016
  2. COTRIMOXAZOLE [Concomitant]
     Active Substance: SULFAMETHOXAZOLE\TRIMETHOPRIM
     Indication: ANTIFUNGAL PROPHYLAXIS
     Dosage: UNK
     Route: 065
  3. AMPHOTERICIN B, LIPOSOME [Suspect]
     Active Substance: AMPHOTERICIN B
     Indication: ANTIFUNGAL TREATMENT
     Dosage: UNK
     Route: 065
     Dates: start: 2016

REACTIONS (1)
  - Drug ineffective [Fatal]

NARRATIVE: CASE EVENT DATE: 2016
